FAERS Safety Report 7228167-0 (Version None)
Quarter: 2011Q1

REPORT INFORMATION
  Report Type: 
  Country: None (occurrence: None)
  Receive Date: 20110114
  Receipt Date: 20110111
  Transmission Date: 20110831
  Serious: Yes (Other)
  Sender: FDA-Public Use
  Company Number: CH-PFIZER INC-2010131436

PATIENT
  Age: 25 Year
  Sex: Female
  Weight: 70 kg

DRUGS (3)
  1. TEMESTA [Suspect]
     Dosage: 1.5 MG, 1X/DAY
     Route: 048
     Dates: start: 20100604, end: 20100614
  2. LYRICA [Interacting]
     Dosage: 75 MG, 1X/DAY
     Route: 048
     Dates: start: 20100608, end: 20100608
  3. CIPRALEX [Concomitant]
     Dosage: 20 MG, 1X/DAY
     Route: 048
     Dates: start: 20100201, end: 20100705

REACTIONS (6)
  - ATAXIA [None]
  - MICTURITION URGENCY [None]
  - DRUG INTERACTION [None]
  - COGNITIVE DISORDER [None]
  - FEELING COLD [None]
  - RESTLESSNESS [None]
